FAERS Safety Report 4723000-0 (Version None)
Quarter: 2005Q3

REPORT INFORMATION
  Report Type: 
  Country: None (occurrence: None)
  Receive Date: 20050719
  Receipt Date: 20040708
  Transmission Date: 20060218
  Serious: Yes (Hospitalization)
  Sender: FDA-Public Use
  Company Number: 2004215784US

PATIENT
  Age: 73 Year
  Sex: Male

DRUGS (4)
  1. CELEBREX [Suspect]
     Indication: ARTHRITIS
     Dosage: 20 MG, QD
     Dates: start: 19990701, end: 20010801
  2. MONOPRIL [Concomitant]
  3. ADALAT [Concomitant]
  4. CUMADIN (WARFARIN SODIUM) [Concomitant]

REACTIONS (1)
  - ULCER HAEMORRHAGE [None]
